FAERS Safety Report 5393689-4 (Version None)
Quarter: 2007Q3

REPORT INFORMATION
  Report Type: 
  Country: None (occurrence: None)
  Receive Date: 20070723
  Receipt Date: 20070716
  Transmission Date: 20080115
  Serious: Yes (Death)
  Sender: FDA-Public Use
  Company Number: SK-ELI_LILLY_AND_COMPANY-SK200707004296

PATIENT
  Age: 61 Year
  Sex: Male

DRUGS (2)
  1. ZYPREXA [Suspect]
     Indication: BIPOLAR DISORDER
     Dosage: UNK, UNK
     Route: 048
     Dates: start: 20060201
  2. VENLAFAXINE HCL [Concomitant]

REACTIONS (1)
  - COMPLETED SUICIDE [None]
